FAERS Safety Report 18265279 (Version 4)
Quarter: 2023Q2

REPORT INFORMATION
  Report Type: Report from Study
  Country: CA (occurrence: CA)
  Receive Date: 20200914
  Receipt Date: 20230518
  Transmission Date: 20230721
  Serious: Yes (Other)
  Sender: FDA-Public Use
  Company Number: CA-JAZZ-2020-CA-011843

PATIENT
  Age: 52 Year
  Sex: Female

DRUGS (56)
  1. XYREM [Suspect]
     Active Substance: SODIUM OXYBATE
     Indication: Fibromyalgia
     Dosage: 11 GRAM
     Route: 048
     Dates: start: 200712, end: 2008
  2. XYREM [Suspect]
     Active Substance: SODIUM OXYBATE
     Dosage: 3.75 GRAM, BID
     Route: 048
     Dates: start: 2010, end: 20100123
  3. XYREM [Suspect]
     Active Substance: SODIUM OXYBATE
     Dosage: 2.25 GRAM, BID
     Route: 048
     Dates: start: 20070906, end: 2007
  4. XYREM [Suspect]
     Active Substance: SODIUM OXYBATE
     Dosage: 3.75 GRAM, BID
     Route: 048
     Dates: start: 20070920, end: 2007
  5. XYREM [Suspect]
     Active Substance: SODIUM OXYBATE
     Dosage: 3.75 GRAM, BID
     Route: 048
     Dates: start: 20071024, end: 2007
  6. XYREM [Suspect]
     Active Substance: SODIUM OXYBATE
     Dosage: 4.5 GRAM, BID
     Route: 048
     Dates: start: 20071110, end: 2007
  7. XYREM [Suspect]
     Active Substance: SODIUM OXYBATE
     Dosage: 5 GRAM, BID
     Route: 048
     Dates: start: 20071127, end: 2007
  8. XYREM [Suspect]
     Active Substance: SODIUM OXYBATE
     Dosage: 11 GRAM
     Route: 048
     Dates: start: 200712, end: 2008
  9. XYREM [Suspect]
     Active Substance: SODIUM OXYBATE
     Dosage: 5.75 GRAM, FIRST DOSE
     Route: 048
     Dates: start: 20080101, end: 2008
  10. XYREM [Suspect]
     Active Substance: SODIUM OXYBATE
     Dosage: 5.50 GRAM, SECOND DOSE
     Route: 048
     Dates: start: 20080101, end: 2008
  11. XYREM [Suspect]
     Active Substance: SODIUM OXYBATE
     Dosage: 6 GRAM, FIST DOSE
     Route: 048
     Dates: start: 20080220, end: 2008
  12. XYREM [Suspect]
     Active Substance: SODIUM OXYBATE
     Dosage: 5.7 GRAM, SECOND DOSE
     Route: 048
     Dates: start: 20080220, end: 2008
  13. XYREM [Suspect]
     Active Substance: SODIUM OXYBATE
     Dosage: 6.25 GRAM, FIRST DOSE
     Route: 048
     Dates: start: 20080305, end: 2008
  14. XYREM [Suspect]
     Active Substance: SODIUM OXYBATE
     Dosage: 5.75 GRAM, SECOND DOSE
     Route: 048
     Dates: start: 20080305, end: 2008
  15. XYREM [Suspect]
     Active Substance: SODIUM OXYBATE
     Dosage: 6.75 GRAM, FIRST DOSE
     Route: 048
     Dates: start: 20080409, end: 2008
  16. XYREM [Suspect]
     Active Substance: SODIUM OXYBATE
     Dosage: 5.75 GRAM, SECOND DOSE
     Route: 048
     Dates: start: 20080409, end: 2008
  17. XYREM [Suspect]
     Active Substance: SODIUM OXYBATE
     Dosage: 7 GRAM, FIRST DOSE
     Route: 048
     Dates: start: 20080604, end: 2008
  18. XYREM [Suspect]
     Active Substance: SODIUM OXYBATE
     Dosage: 5.75 GRAM, SECOND DOSE
     Route: 048
     Dates: start: 20080604, end: 2008
  19. XYREM [Suspect]
     Active Substance: SODIUM OXYBATE
     Dosage: 5 GRAM, BID
     Route: 048
     Dates: start: 20090311
  20. XYREM [Suspect]
     Active Substance: SODIUM OXYBATE
     Dosage: 4.0 GRAM, FIRST DOSE
     Route: 048
     Dates: start: 20090408, end: 2009
  21. XYREM [Suspect]
     Active Substance: SODIUM OXYBATE
     Dosage: 3.5 GRAM, SECOND DOSE
     Route: 048
     Dates: start: 20090408, end: 2009
  22. XYREM [Suspect]
     Active Substance: SODIUM OXYBATE
     Dosage: 3.5 GRAM, THIRD DOSE
     Route: 048
     Dates: start: 20090408, end: 2009
  23. XYREM [Suspect]
     Active Substance: SODIUM OXYBATE
     Dosage: 4 GRAM, TID
     Route: 048
     Dates: start: 20090506, end: 2009
  24. XYREM [Suspect]
     Active Substance: SODIUM OXYBATE
     Dosage: 3.5 GRAM, BID
     Route: 048
     Dates: start: 20100126, end: 201001
  25. XYREM [Suspect]
     Active Substance: SODIUM OXYBATE
     Dosage: 3.75 GRAM, BID
     Route: 048
     Dates: start: 20100130, end: 20100130
  26. XYREM [Suspect]
     Active Substance: SODIUM OXYBATE
     Dosage: 4.5 GRAM, BID
     Route: 048
     Dates: start: 20100131, end: 2010
  27. XYREM [Suspect]
     Active Substance: SODIUM OXYBATE
     Dosage: 4.25 GRAM, FIRST DOSE
     Route: 048
     Dates: start: 20100224, end: 20110202
  28. XYREM [Suspect]
     Active Substance: SODIUM OXYBATE
     Dosage: 3.75 GRAM, SECOND DOSE
     Route: 048
     Dates: start: 20100224, end: 20110202
  29. XYREM [Suspect]
     Active Substance: SODIUM OXYBATE
     Dosage: 2.25 GRAM, BID
     Route: 048
     Dates: start: 20120731
  30. XYREM [Suspect]
     Active Substance: SODIUM OXYBATE
     Dosage: 3 GRAM, BID
     Route: 048
     Dates: start: 20121025
  31. XYREM [Suspect]
     Active Substance: SODIUM OXYBATE
     Dosage: DOSE : 6G FREQUENCY : TWO EQUAL
  32. XYREM [Suspect]
     Active Substance: SODIUM OXYBATE
     Dosage: DOSE : 4.5G FREQUENCY : TWO EQUAL DOSES
     Dates: start: 20120731
  33. XYREM [Suspect]
     Active Substance: SODIUM OXYBATE
     Dosage: DOSE : 8G FREQUENCY : TWO UNEQUAL DOSES
     Dates: start: 20100224, end: 20110202
  34. XYREM [Suspect]
     Active Substance: SODIUM OXYBATE
     Dosage: DOSE : 9G FREQUENCY : TWO EQUAL DOSES
     Dates: start: 20100131, end: 2010
  35. XYREM [Suspect]
     Active Substance: SODIUM OXYBATE
     Dosage: DOSE : 7.5G FREQUENCY : TWO EQUAL DOSES
     Dates: start: 20100130, end: 20100130
  36. XYREM [Suspect]
     Active Substance: SODIUM OXYBATE
     Dosage: DOSE : 7G FREQUENCY : TWO EQUAL DOSES
     Dates: start: 20100126, end: 201001
  37. XYREM [Suspect]
     Active Substance: SODIUM OXYBATE
     Dosage: DOSE : 7.5G FREQUENCY : DIVIDED IN TWO EQUAL DOSES (QHS AND 2.5 - 4HRS AFTER 1ST DOSE)
     Dates: start: 2010, end: 20100123
  38. XYREM [Suspect]
     Active Substance: SODIUM OXYBATE
     Dosage: DOSE : 12G FREQUENCY : THREE EQUAL DOSES
     Dates: start: 20090506, end: 2009
  39. XYREM [Suspect]
     Active Substance: SODIUM OXYBATE
     Dosage: DOSE : 11G FREQUENCY : THREE UNEQUAL DOSES
     Dates: start: 20090408, end: 2009
  40. XYREM [Suspect]
     Active Substance: SODIUM OXYBATE
     Dosage: DOSE : 10G FREQUENCY : TWO EQUAL DOSES
     Dates: start: 20090311
  41. XYREM [Suspect]
     Active Substance: SODIUM OXYBATE
     Dosage: DOSE : 12.75G FREQUENCY : TWO UNEQUAL DOSES
     Dates: start: 20080604, end: 2008
  42. XYREM [Suspect]
     Active Substance: SODIUM OXYBATE
     Dosage: DOSE : 12.5G FREQUENCY : TWO UNEQUAL DOSES
     Dates: start: 20080409, end: 2008
  43. XYREM [Suspect]
     Active Substance: SODIUM OXYBATE
     Dosage: DOSE : 12G FREQUENCY : TWO UNEQUAL DOSES
     Dates: start: 20080305, end: 2008
  44. XYREM [Suspect]
     Active Substance: SODIUM OXYBATE
     Dosage: DOSE : 11.7G FREQUENCY : TWO UNEQUAL DOSES
     Dates: start: 20080220, end: 2008
  45. XYREM [Suspect]
     Active Substance: SODIUM OXYBATE
     Dosage: DOSE : 11.25G FREQUENCY : TWO UNEQUAL DOSES
     Dates: start: 20080101, end: 2008
  46. SYNTHROID [Concomitant]
     Active Substance: LEVOTHYROXINE SODIUM
     Indication: Product used for unknown indication
     Dosage: UNK, QD
     Route: 048
  47. METHYLPHENIDATE [Concomitant]
     Active Substance: METHYLPHENIDATE
     Indication: Product used for unknown indication
  48. MODAFINIL [Concomitant]
     Active Substance: MODAFINIL
     Indication: Product used for unknown indication
     Dosage: 2 TABS 100MG, BID
  49. TOPIRAMATE [Concomitant]
     Active Substance: TOPIRAMATE
     Indication: Product used for unknown indication
     Dosage: 2 TABS, BID
  50. TRAMADOL [Concomitant]
     Active Substance: TRAMADOL
     Indication: Product used for unknown indication
     Dosage: 1, BID
  51. ACETAMINOPHEN\OXYCODONE HYDROCHLORIDE [Concomitant]
     Active Substance: ACETAMINOPHEN\OXYCODONE HYDROCHLORIDE
     Indication: Product used for unknown indication
     Dosage: 1 TAB PRN, QD
  52. ROSUVASTATIN [Concomitant]
     Active Substance: ROSUVASTATIN
     Indication: Product used for unknown indication
     Dosage: UNK, QD
  53. CIPRALEX [Concomitant]
     Active Substance: ESCITALOPRAM OXALATE
     Indication: Product used for unknown indication
     Dosage: UNK, QD
  54. VITAMIN B COMPLEX [Concomitant]
     Active Substance: CYANOCOBALAMIN\DEXPANTHENOL\NIACINAMIDE\PYRIDOXINE HYDROCHLORIDE\RIBOFLAVIN 5^-PHOSPHATE SODIUM\THIA
     Indication: Product used for unknown indication
     Dosage: 1 TAB, QD
  55. CHOLECALCIFEROL [Concomitant]
     Active Substance: CHOLECALCIFEROL
     Indication: Product used for unknown indication
     Dosage: 1 TAB, QD
  56. ALBUTEROL SULFATE [Concomitant]
     Active Substance: ALBUTEROL SULFATE
     Indication: Product used for unknown indication
     Dosage: PUFFER PRN

REACTIONS (3)
  - Peripheral nerve injury [Not Recovered/Not Resolved]
  - Ear operation [Unknown]
  - Ear infection [Unknown]

NARRATIVE: CASE EVENT DATE: 20190701
